FAERS Safety Report 9803135 (Version 1)
Quarter: 2014Q1

REPORT INFORMATION
  Report Type: Spontaneous
  Country: GB (occurrence: GB)
  Receive Date: 20140108
  Receipt Date: 20140108
  Transmission Date: 20141002
  Serious: Yes (Hospitalization)
  Sender: FDA-Public Use
  Company Number: GB-JNJFOC-20140101989

PATIENT
  Age: 64 Year
  Sex: Male

DRUGS (5)
  1. XARELTO [Suspect]
     Indication: KNEE ARTHROPLASTY
     Route: 048
     Dates: start: 20131217, end: 20131223
  2. XARELTO [Suspect]
     Indication: THROMBOSIS PROPHYLAXIS
     Route: 048
     Dates: start: 20131217, end: 20131223
  3. FERROUS FUMARATE [Concomitant]
     Route: 048
  4. ALLOPURINOL [Concomitant]
     Indication: GOUT
     Route: 048
  5. SIMVASTATIN [Concomitant]
     Indication: HYPERCHOLESTEROLAEMIA
     Route: 048

REACTIONS (3)
  - Haemorrhoidal haemorrhage [Recovering/Resolving]
  - Presyncope [Unknown]
  - Tachycardia [Unknown]
